FAERS Safety Report 12517980 (Version 2)
Quarter: 2016Q3

REPORT INFORMATION
  Report Type: Spontaneous
  Country: PA (occurrence: PA)
  Receive Date: 20160630
  Receipt Date: 20160713
  Transmission Date: 20161109
  Serious: No
  Sender: FDA-Public Use
  Company Number: PHHY2016PA089350

PATIENT
  Age: 38 Year
  Sex: Female
  Weight: 49.89 kg

DRUGS (4)
  1. SINUSTAT//PSEUDOEPHEDRINE HYDROCHLORIDE [Concomitant]
     Indication: PRODUCT USED FOR UNKNOWN INDICATION
     Dosage: 1 DF, QD (IN THE MORNING)
     Route: 065
  2. OLANZAPINA [Concomitant]
     Active Substance: OLANZAPINE
     Indication: SLEEP DISORDER
     Dosage: 1 DF, UNK
     Route: 065
  3. PASIL [Concomitant]
     Active Substance: PAZUFLOXACIN MESILATE
     Indication: DEPRESSION
     Dosage: 2 DF, QD
     Route: 065
  4. AFINITOR [Suspect]
     Active Substance: EVEROLIMUS
     Indication: BREAST CANCER METASTATIC
     Dosage: 10 MG (1 DF), QD (IN THE MORNING)
     Route: 065

REACTIONS (10)
  - Pain [Unknown]
  - Lip dry [Unknown]
  - Blister [Unknown]
  - Lip ulceration [Unknown]
  - Mouth ulceration [Recovered/Resolved]
  - Skin irritation [Recovering/Resolving]
  - Hypokinesia [Unknown]
  - Restlessness [Recovering/Resolving]
  - Lip blister [Unknown]
  - Feeding disorder [Recovered/Resolved]
